FAERS Safety Report 13981515 (Version 1)
Quarter: 2017Q3

REPORT INFORMATION
  Report Type: Spontaneous
  Country: US (occurrence: US)
  Receive Date: 20170918
  Receipt Date: 20170918
  Transmission Date: 20171128
  Serious: No
  Sender: FDA-Public Use
  Company Number: US-PFIZER INC-2017401680

PATIENT
  Sex: Female

DRUGS (6)
  1. DILANTIN [Suspect]
     Active Substance: PHENYTOIN
     Indication: GENERALISED TONIC-CLONIC SEIZURE
     Dosage: UNK
  2. NEURONTIN [Suspect]
     Active Substance: GABAPENTIN
     Indication: GENERALISED TONIC-CLONIC SEIZURE
     Dosage: UNK
  3. TEGRETOL [Suspect]
     Active Substance: CARBAMAZEPINE
     Indication: GENERALISED TONIC-CLONIC SEIZURE
     Dosage: UNK
  4. GABITRIL [Concomitant]
     Active Substance: TIAGABINE HYDROCHLORIDE
     Indication: SEIZURE
  5. PHENOBARB [Suspect]
     Active Substance: PHENOBARBITAL SODIUM
     Indication: GENERALISED TONIC-CLONIC SEIZURE
     Dosage: UNK
     Dates: start: 1985, end: 1986
  6. GABITRIL [Concomitant]
     Active Substance: TIAGABINE HYDROCHLORIDE
     Indication: MUSCLE SPASTICITY
     Dosage: 12MG TABLET BY MOUTH TWO TIMES A DAY
     Route: 048

REACTIONS (1)
  - Drug ineffective [Unknown]

NARRATIVE: CASE EVENT DATE: 1985
